FAERS Safety Report 10994207 (Version 1)
Quarter: 2015Q2

REPORT INFORMATION
  Report Type: Spontaneous
  Country: GB (occurrence: GB)
  Receive Date: 20150407
  Receipt Date: 20150407
  Transmission Date: 20150821
  Serious: Yes (Death)
  Sender: FDA-Public Use
  Company Number: GB-CIPLA LTD.-2015GB02655

PATIENT

DRUGS (11)
  1. METOCLOPRAMIDE. [Concomitant]
     Active Substance: METOCLOPRAMIDE
     Dosage: FOR 3 DAYS
     Route: 048
  2. CIPROFLOXACIN. [Concomitant]
     Active Substance: CIPROFLOXACIN
     Dosage: 250 MG, BID, FOR 7 DAYS
  3. 5 FLUOROURACIL [Suspect]
     Active Substance: FLUOROURACIL
     Dosage: 2400 MG/M2, OVER 48 HOURS
  4. IRINOTECAN [Suspect]
     Active Substance: IRINOTECAN
     Indication: ADENOCARCINOMA PANCREAS
     Dosage: 180 MG/M2, EVERY 2 WEEKS, FOR 9 CYCLES
  5. LEUCOVORIN [Suspect]
     Active Substance: LEUCOVORIN
     Dosage: 400 MG/M2, FOR 1 HOUR, EVERY 2 WEEKS
  6. DEXAMETHASONE. [Concomitant]
     Active Substance: DEXAMETHASONE
     Dosage: FOR 3 DAYS
     Route: 048
  7. OXALIPLATIN. [Suspect]
     Active Substance: OXALIPLATIN
     Indication: ADENOCARCINOMA PANCREAS
     Dosage: 85 MG/M2, FOR 2 HOURS, EVERY 2 WEEKS FOR 9 CYCLES
  8. 5 FLUOROURACIL [Suspect]
     Active Substance: FLUOROURACIL
     Indication: ADENOCARCINOMA PANCREAS
     Dosage: 400 MG/M2, BOLUS FOR 9 HOURS, EVERY 2 WEEKS FOR 9 CYCLES
  9. ONDANSETRON [Concomitant]
     Active Substance: ONDANSETRON
  10. ATROPINE [Concomitant]
     Active Substance: ATROPINE
  11. LOPERAMIDE [Concomitant]
     Active Substance: LOPERAMIDE

REACTIONS (1)
  - Death [Fatal]
